FAERS Safety Report 6935046-2 (Version None)
Quarter: 2010Q3

REPORT INFORMATION
  Report Type: 
  Country: None (occurrence: None)
  Receive Date: 20100822
  Receipt Date: 20100811
  Transmission Date: 20110219
  Serious: Yes (Hospitalization)
  Sender: FDA-Public Use
  Company Number: PHHO2010US09695

PATIENT
  Sex: Male
  Weight: 78.6 kg

DRUGS (10)
  1. STI571/CGP57148B T35717+CAPS [Suspect]
     Indication: CHRONIC MYELOID LEUKAEMIA
     Dosage: 400 MG
     Route: 048
     Dates: start: 20010613
  2. BENAZEPRIL [Concomitant]
  3. COLACE [Concomitant]
  4. DARVOCET-N 100 [Concomitant]
  5. DULCOLAX [Concomitant]
  6. MULTI-VITAMINS [Concomitant]
  7. NORCO [Concomitant]
  8. PROMETHAZINE [Concomitant]
  9. AMITIZA [Concomitant]
  10. LACTULOSE [Concomitant]

REACTIONS (35)
  - ABDOMINAL DISTENSION [None]
  - ABDOMINAL PAIN [None]
  - ADRENAL MASS [None]
  - ANAEMIA OF CHRONIC DISEASE [None]
  - ASTHENIA [None]
  - BACK PAIN [None]
  - CONSTIPATION [None]
  - DECREASED APPETITE [None]
  - DIARRHOEA [None]
  - EARLY SATIETY [None]
  - HYPERTENSION [None]
  - INTESTINAL FUNCTIONAL DISORDER [None]
  - LIVER SCAN ABNORMAL [None]
  - LUMBAR VERTEBRAL FRACTURE [None]
  - LUNG NEOPLASM [None]
  - LYMPHADENOPATHY [None]
  - METASTASES TO ADRENALS [None]
  - METASTASES TO BONE [None]
  - METASTASES TO LIVER [None]
  - METASTASES TO LUNG [None]
  - METASTASES TO LYMPH NODES [None]
  - METASTASES TO THORAX [None]
  - NAUSEA [None]
  - OSTEOSCLEROSIS [None]
  - PYREXIA [None]
  - RENAL CELL CARCINOMA [None]
  - RENAL IMPAIRMENT [None]
  - RENAL VESSEL DISORDER [None]
  - RETROPERITONEAL LYMPHADENOPATHY [None]
  - SPINAL COMPRESSION FRACTURE [None]
  - TACHYCARDIA [None]
  - THORACIC VERTEBRAL FRACTURE [None]
  - VERTEBROPLASTY [None]
  - VOMITING [None]
  - WEIGHT DECREASED [None]
